FAERS Safety Report 8996900 (Version 1)
Quarter: 2012Q4

REPORT INFORMATION
  Report Type: Spontaneous
  Country: US (occurrence: None)
  Receive Date: 20121231
  Receipt Date: 20121231
  Transmission Date: 20130627
  Serious: Yes (Life-Threatening, Hospitalization)
  Sender: FDA-Public Use
  Company Number: None

PATIENT
  Age: 66 Year
  Sex: Male
  Weight: 55.5 kg

DRUGS (2)
  1. HYDROCHLOROTHIAZIDE\LISINOPRIL [Suspect]
     Dosage: 25/40 MG EVERY DAY PO
     Route: 048
     Dates: start: 20120907, end: 20121019
  2. HYDROCHLOROTHIAZIDE\LISINOPRIL [Suspect]
     Dosage: 25/40 MG EVERY DAY PO
     Route: 048
     Dates: start: 20120907, end: 20121019

REACTIONS (3)
  - Hyponatraemia [None]
  - Hypokalaemia [None]
  - Hypomagnesaemia [None]
